FAERS Safety Report 12783994 (Version 2)
Quarter: 2016Q3

REPORT INFORMATION
  Report Type: Spontaneous
  Country: IT (occurrence: IT)
  Receive Date: 20160927
  Receipt Date: 20160928
  Transmission Date: 20161109
  Serious: Yes (Hospitalization)
  Sender: FDA-Public Use
  Company Number: IT-GLAXOSMITHKLINE-IT2016GSK137752

PATIENT
  Age: 36 Year
  Sex: Female

DRUGS (2)
  1. WELLBUTRIN [Suspect]
     Active Substance: BUPROPION HYDROCHLORIDE
     Indication: ANXIETY
     Dosage: 2 UNK, SINGLE
     Route: 048
     Dates: start: 20160907, end: 20160907
  2. MINIAS [Concomitant]
     Active Substance: LORMETAZEPAM
     Indication: ANXIETY
     Dosage: 4 UNK, UNK

REACTIONS (5)
  - Psychomotor hyperactivity [Recovered/Resolved]
  - Drug abuse [Unknown]
  - Stress [Recovered/Resolved]
  - Psychomotor retardation [Unknown]
  - Anxiety [Recovered/Resolved]

NARRATIVE: CASE EVENT DATE: 20160907
